FAERS Safety Report 6050049-0 (Version None)
Quarter: 2009Q1

REPORT INFORMATION
  Report Type: 
  Country: None (occurrence: None)
  Receive Date: 20090121
  Receipt Date: 20090109
  Transmission Date: 20090719
  Serious: Yes (Hospitalization, Disabling)
  Sender: FDA-Public Use
  Company Number: 039905

PATIENT
  Age: 52 Year
  Sex: Male

DRUGS (4)
  1. CARBAMAZEPINE [Suspect]
     Indication: EPILEPSY
  2. VALPROIC ACID (VALPRODIC ACID) UNKNOWN [Suspect]
     Indication: EPILEPSY
  3. MEPHENYTOIN (MEPHENYTOIN) [Suspect]
     Indication: EPILEPSY
  4. METHARBIT (METHARBITAL) [Suspect]
     Indication: EPILEPSY

REACTIONS (5)
  - COMPLEX REGIONAL PAIN SYNDROME [None]
  - DRUG INEFFECTIVE [None]
  - MUSCULOSKELETAL PAIN [None]
  - OEDEMA PERIPHERAL [None]
  - PAIN IN EXTREMITY [None]
